FAERS Safety Report 6842118-X (Version None)
Quarter: 2010Q3

REPORT INFORMATION
  Report Type: 
  Country: None (occurrence: None)
  Receive Date: 20100714
  Receipt Date: 20070722
  Transmission Date: 20110219
  Serious: No
  Sender: FDA-Public Use
  Company Number: US-PFIZER INC-2007061847

PATIENT
  Sex: Female
  Weight: 63.636 kg

DRUGS (3)
  1. CHANTIX [Suspect]
     Indication: SMOKING CESSATION THERAPY
     Route: 048
     Dates: start: 20070721
  2. LISINOPRIL [Concomitant]
     Indication: HYPERTENSION
  3. HYDROCODONE [Concomitant]
     Indication: PAIN

REACTIONS (2)
  - INSOMNIA [None]
  - NERVOUSNESS [None]
